FAERS Safety Report 7994853-8 (Version None)
Quarter: 2011Q4

REPORT INFORMATION
  Report Type: 
  Country: None (occurrence: None)
  Receive Date: 20111220
  Receipt Date: 20111216
  Transmission Date: 20120403
  Serious: Yes (Other)
  Sender: FDA-Public Use
  Company Number: US-BAYER-2011-091279

PATIENT
  Age: 22 Year
  Sex: Female
  Weight: 99.773 kg

DRUGS (2)
  1. MAGNEVIST [Suspect]
     Indication: NUCLEAR MAGNETIC RESONANCE IMAGING
     Dosage: 20 ML, ONCE
     Route: 042
     Dates: start: 20110926, end: 20110926
  2. VOLTAREN [Concomitant]

REACTIONS (16)
  - THROAT IRRITATION [None]
  - CHEST PAIN [None]
  - LIP SWELLING [None]
  - ANXIETY [None]
  - URTICARIA [None]
  - FLUSHING [None]
  - CHILLS [None]
  - RASH [None]
  - BLOOD PRESSURE INCREASED [None]
  - PRURITUS [None]
  - SNEEZING [None]
  - THROAT TIGHTNESS [None]
  - DYSPNOEA [None]
  - HEADACHE [None]
  - TACHYCARDIA [None]
  - EAR PAIN [None]
